FAERS Safety Report 16026969 (Version 1)
Quarter: 2019Q1

REPORT INFORMATION
  Report Type: Spontaneous
  Country: US (occurrence: US)
  Receive Date: 20190303
  Receipt Date: 20190303
  Transmission Date: 20190418
  Serious: No
  Sender: FDA-Public Use
  Company Number: US-IMPAX LABORATORIES, LLC-2018-IPXL-00315

PATIENT
  Sex: Female
  Weight: 54 kg

DRUGS (11)
  1. RYTARY [Suspect]
     Active Substance: CARBIDOPA\LEVODOPA
     Indication: PARKINSON^S DISEASE
     Dosage: 36.25/145 MG, TWO CAPSULES, FIVE TIMES A DAY
     Route: 048
     Dates: start: 20180120, end: 201801
  2. RYTARY [Suspect]
     Active Substance: CARBIDOPA\LEVODOPA
     Dosage: 36.25/145 MG; 7 AM THREE PILLS, 12 NOON 4 PILLS, AND AT 5 PM, 10 PM, 3 AM TWO PILLS
     Route: 048
     Dates: start: 20180213
  3. ASPIRIN. [Concomitant]
     Active Substance: ASPIRIN
     Indication: PRODUCT USED FOR UNKNOWN INDICATION
     Dosage: 81 MG, UNK
     Route: 065
  4. RYTARY [Suspect]
     Active Substance: CARBIDOPA\LEVODOPA
     Dosage: 36.25/145 MG; 7 AM AND 12 NOON TAKING THREE PILLS INSTEAD OF TWO PILLS AND AT 5 PM, 10 PM, 3 AM
     Route: 048
     Dates: start: 201801
  5. ANTACID [Concomitant]
     Active Substance: ALUMINUM HYDROXIDE\CALCIUM CARBONATE\DIMETHICONE\MAGNESIUM HYDROXIDE
     Indication: ANTACID THERAPY
     Dosage: 400 MG, UNK
     Route: 065
  6. ARICEPT [Concomitant]
     Active Substance: DONEPEZIL HYDROCHLORIDE
     Indication: PRODUCT USED FOR UNKNOWN INDICATION
     Dosage: 10 MG, UNK
     Route: 065
  7. MEGESTROL [Concomitant]
     Active Substance: MEGESTROL
     Indication: HORMONE THERAPY
     Dosage: 40 MG, UNK
     Route: 065
  8. METHYL PHENIDATE [Concomitant]
     Active Substance: METHYLPHENIDATE HYDROCHLORIDE
     Indication: DEPRESSED LEVEL OF CONSCIOUSNESS
     Dosage: UNK
     Route: 065
  9. VITAMIN D3 [Concomitant]
     Active Substance: CHOLECALCIFEROL
     Indication: OSTEOPOROSIS
     Dosage: 20000 IU, UNK
     Route: 065
  10. LIPITOR [Concomitant]
     Active Substance: ATORVASTATIN CALCIUM
     Indication: CARDIAC DISORDER
     Dosage: 20 MG, UNK
     Route: 065
  11. MELATONIN [Concomitant]
     Active Substance: MELATONIN
     Indication: SLEEP DISORDER
     Dosage: 5 MG, UNK
     Route: 065

REACTIONS (6)
  - Inappropriate schedule of product administration [Unknown]
  - Therapeutic response shortened [Unknown]
  - Fall [Unknown]
  - Drug effect variable [Not Recovered/Not Resolved]
  - Gait disturbance [Not Recovered/Not Resolved]
  - Product use complaint [Unknown]
